FAERS Safety Report 11042351 (Version 4)
Quarter: 2020Q1

REPORT INFORMATION
  Report Type: Spontaneous
  Country: US (occurrence: US)
  Receive Date: 20150416
  Receipt Date: 20200306
  Transmission Date: 20200409
  Serious: Yes (Death, Hospitalization, Other)
  Sender: FDA-Public Use
  Company Number: US-JNJFOC-20150317633

PATIENT
  Age: 58 Year
  Sex: Male

DRUGS (19)
  1. OXYMORPHONE [Concomitant]
     Active Substance: OXYMORPHONE
     Route: 065
  2. LISINOPRIL. [Concomitant]
     Active Substance: LISINOPRIL
     Route: 065
  3. CYCLOBENZAPRINE. [Concomitant]
     Active Substance: CYCLOBENZAPRINE
     Route: 065
  4. NITROGLYCERIN. [Concomitant]
     Active Substance: NITROGLYCERIN
     Route: 065
  5. CHLORTHALIDONE. [Concomitant]
     Active Substance: CHLORTHALIDONE
     Route: 065
  6. XARELTO [Suspect]
     Active Substance: RIVAROXABAN
     Indication: ATRIAL FIBRILLATION
     Route: 048
     Dates: start: 20130828, end: 20140318
  7. XARELTO [Suspect]
     Active Substance: RIVAROXABAN
     Indication: CEREBROVASCULAR ACCIDENT PROPHYLAXIS
  8. METOPROLOL. [Concomitant]
     Active Substance: METOPROLOL
     Route: 065
  9. XARELTO [Suspect]
     Active Substance: RIVAROXABAN
     Indication: THROMBOSIS PROPHYLAXIS
  10. EZETIMIBE. [Concomitant]
     Active Substance: EZETIMIBE
     Route: 065
  11. METFORMIN [Concomitant]
     Active Substance: METFORMIN HYDROCHLORIDE
     Route: 065
  12. VYTORIN [Concomitant]
     Active Substance: EZETIMIBE\SIMVASTATIN
     Route: 065
  13. ACETAMINOPHEN. [Concomitant]
     Active Substance: ACETAMINOPHEN
     Route: 065
  14. DILTIAZEM. [Concomitant]
     Active Substance: DILTIAZEM
     Route: 065
  15. OXYCODONE [Concomitant]
     Active Substance: OXYCODONE
     Route: 065
  16. DUTASTERIDE. [Concomitant]
     Active Substance: DUTASTERIDE
     Route: 065
  17. OPANA [Concomitant]
     Active Substance: OXYMORPHONE HYDROCHLORIDE
     Route: 065
  18. SIMVASTATIN. [Concomitant]
     Active Substance: SIMVASTATIN
     Route: 065
  19. LANSOPRAZOLE. [Concomitant]
     Active Substance: LANSOPRAZOLE
     Route: 065

REACTIONS (4)
  - Enterocolitis haemorrhagic [Recovering/Resolving]
  - Upper gastrointestinal haemorrhage [Unknown]
  - Haematuria [Unknown]
  - Acute kidney injury [Recovered/Resolved]

NARRATIVE: CASE EVENT DATE: 201403
